FAERS Safety Report 14488327 (Version 1)
Quarter: 2018Q1

REPORT INFORMATION
  Report Type: Spontaneous
  Country: CN (occurrence: CN)
  Receive Date: 20180205
  Receipt Date: 20180205
  Transmission Date: 20180509
  Serious: Yes (Hospitalization, Other)
  Sender: FDA-Public Use
  Company Number: CN-MYLANLABS-2018M1007235

PATIENT
  Sex: Female

DRUGS (6)
  1. DEXAMETHASONE. [Suspect]
     Active Substance: DEXAMETHASONE
     Dosage: CONTINUOUS ORAL ADMINISTRATION OF 20 MG X 4 D FOLLOWED BY AN INTERVAL OF 4 DAYS AND THEN ORAL AGA...
     Route: 048
  2. VINDESINE [Suspect]
     Active Substance: VINDESINE
     Indication: PLASMA CELL MYELOMA
     Dosage: 1MG X 4 D
     Route: 042
     Dates: start: 20140414
  3. DEXAMETHASONE. [Suspect]
     Active Substance: DEXAMETHASONE
     Indication: PLASMA CELL MYELOMA
     Dosage: 20 MG X 4 D. ADMINISTERED AS A PART OF DVD CHEMOTHERAPY CYCLE. CYCLE WAS REPEATED ON 13 MAY, 13 J...
     Route: 042
     Dates: start: 20140414
  4. DEXAMETHASONE. [Suspect]
     Active Substance: DEXAMETHASONE
     Route: 065
  5. THALIDOMIDE [Suspect]
     Active Substance: THALIDOMIDE
     Indication: PLASMA CELL MYELOMA
     Dosage: 100MG EVERY NIGHT
     Route: 065
  6. DOXORUBICIN [Suspect]
     Active Substance: DOXORUBICIN
     Indication: PLASMA CELL MYELOMA
     Dosage: 20 MG X 2 D
     Route: 042
     Dates: start: 20140414

REACTIONS (1)
  - Transformation to acute myeloid leukaemia [Unknown]

NARRATIVE: CASE EVENT DATE: 20161010
